FAERS Safety Report 8181755-X (Version None)
Quarter: 2012Q1

REPORT INFORMATION
  Report Type: 
  Country: None (occurrence: None)
  Receive Date: 20120302
  Receipt Date: 20111005
  Transmission Date: 20120608
  Serious: No
  Sender: FDA-Public Use
  Company Number: US-AMGEN-USASP2011051767

PATIENT
  Sex: Female

DRUGS (2)
  1. NPLATE [Suspect]
     Indication: IDIOPATHIC THROMBOCYTOPENIC PURPURA
     Dosage: 1 MUG/KG, UNK
     Dates: start: 20110625, end: 20110728
  2. CORTICOSTEROIDS [Concomitant]
     Dosage: 120 MG, QD

REACTIONS (1)
  - LIVING IN RESIDENTIAL INSTITUTION [None]
